FAERS Safety Report 17221905 (Version 1)
Quarter: 2020Q1

REPORT INFORMATION
  Report Type: Spontaneous
  Country: US (occurrence: US)
  Receive Date: 20200101
  Receipt Date: 20200101
  Transmission Date: 20200409
  Serious: Yes (Other)
  Sender: FDA-Public Use
  Company Number: US-ASTRAZENECA-2019SF90267

PATIENT
  Age: 689 Month
  Sex: Female
  Weight: 127.9 kg

DRUGS (47)
  1. BENADRYL [Concomitant]
     Active Substance: DIPHENHYDRAMINE HYDROCHLORIDE
     Indication: DIALYSIS
     Dosage: APPROXIMATELY 2008
  2. VITAMIN [Concomitant]
     Active Substance: VITAMINS
     Indication: DIALYSIS
     Dosage: APPROXIMATELY 2008
  3. HYDROXYZINE [Concomitant]
     Active Substance: HYDROXYZINE HYDROCHLORIDE
  4. VENOFER [Concomitant]
     Active Substance: IRON SUCROSE
  5. FORTAMET [Concomitant]
     Active Substance: METFORMIN HYDROCHLORIDE
  6. ZANTAC [Concomitant]
     Active Substance: RANITIDINE HYDROCHLORIDE
     Indication: GASTROOESOPHAGEAL REFLUX DISEASE
     Dosage: ZANTAC 150 (PRESCRIPTION), APPROXIMATELY
  7. ZEMPLAR [Concomitant]
     Active Substance: PARICALCITOL
  8. COREG [Concomitant]
     Active Substance: CARVEDILOL
  9. FLUCONAZOLE. [Concomitant]
     Active Substance: FLUCONAZOLE
  10. FLUTICASONE PROPIONATE. [Concomitant]
     Active Substance: FLUTICASONE PROPIONATE
  11. HYDROMORPHONE HYDROCHLORIDE. [Concomitant]
     Active Substance: HYDROMORPHONE HYDROCHLORIDE
  12. CLINDAMYCIN HYDROCHLORIDE. [Concomitant]
     Active Substance: CLINDAMYCIN HYDROCHLORIDE
  13. METHYLPREDNISOLONE. [Concomitant]
     Active Substance: METHYLPREDNISOLONE
  14. TAMOXIFEN CITRATE. [Concomitant]
     Active Substance: TAMOXIFEN CITRATE
  15. CALCITRIOL. [Concomitant]
     Active Substance: CALCITRIOL
  16. CITALOPRAM [Concomitant]
     Active Substance: CITALOPRAM HYDROBROMIDE
  17. CHANTIX [Concomitant]
     Active Substance: VARENICLINE TARTRATE
  18. DEXAMETHASONE. [Concomitant]
     Active Substance: DEXAMETHASONE
  19. FUROSEMIDE. [Concomitant]
     Active Substance: FUROSEMIDE
  20. CARVEDIROL [Concomitant]
     Indication: DIALYSIS
     Dosage: APPROXIMATELY 2008
  21. ONDANSETRON [Concomitant]
     Active Substance: ONDANSETRON
  22. AZITHROMYCIN ANHYDROUS. [Concomitant]
     Active Substance: AZITHROMYCIN ANHYDROUS
  23. ANASTROZOLE. [Concomitant]
     Active Substance: ANASTROZOLE
  24. PROAIR HFA [Concomitant]
     Active Substance: ALBUTEROL SULFATE
  25. BANOPHEN [Concomitant]
     Active Substance: DIPHENHYDRAMINE HYDROCHLORIDE
  26. SENSIPOR [Concomitant]
     Indication: DIALYSIS
     Dosage: APPROXIMATELY 2008
  27. TRIAMCINOLONE [Concomitant]
     Active Substance: TRIAMCINOLONE
  28. NEXIUM 24HR [Suspect]
     Active Substance: ESOMEPRAZOLE MAGNESIUM
     Indication: GASTROOESOPHAGEAL REFLUX DISEASE
     Route: 048
  29. PREVACID [Suspect]
     Active Substance: LANSOPRAZOLE
     Indication: GASTROOESOPHAGEAL REFLUX DISEASE
     Dosage: APPROXIMATELY 199630.0MG UNKNOWN
     Route: 065
  30. TUMS [Concomitant]
     Active Substance: CALCIUM CARBONATE
     Dosage: 2 TABLETS AS REQUIRED
  31. CEPHALEXIN. [Concomitant]
     Active Substance: CEPHALEXIN
  32. GLIPIZIDE. [Concomitant]
     Active Substance: GLIPIZIDE
  33. CARDIZEM [Concomitant]
     Active Substance: DILTIAZEM HYDROCHLORIDE
  34. LISINOPRIL. [Concomitant]
     Active Substance: LISINOPRIL
  35. PREVACID [Suspect]
     Active Substance: LANSOPRAZOLE
     Indication: GASTROOESOPHAGEAL REFLUX DISEASE
     Dosage: GENERIC, APPROXIMATELY 19963.0MG UNKNOWN
     Route: 065
  36. ZANTAC [Concomitant]
     Active Substance: RANITIDINE HYDROCHLORIDE
     Indication: GASTROOESOPHAGEAL REFLUX DISEASE
     Dosage: APPROXIMATELY 1975
  37. RENVELA [Concomitant]
     Active Substance: SEVELAMER CARBONATE
     Indication: DIALYSIS
     Dosage: APPROXIMATELY 2008
  38. EMLA [Concomitant]
     Active Substance: LIDOCAINE\PRILOCAINE
  39. CEFUROXIME AXETIL. [Concomitant]
     Active Substance: CEFUROXIME AXETIL
  40. AMOXICILLIN POTASSIUM CLAVULANATE [Concomitant]
  41. SULPHAMETHOXAZOLE TRIMETHOPRIM [Concomitant]
  42. MELOXICAM. [Concomitant]
     Active Substance: MELOXICAM
  43. BENICAR [Concomitant]
     Active Substance: OLMESARTAN MEDOXOMIL
  44. METRONIDAZOLE. [Concomitant]
     Active Substance: METRONIDAZOLE
  45. LETROZOLE. [Concomitant]
     Active Substance: LETROZOLE
  46. IBUPROFEN. [Concomitant]
     Active Substance: IBUPROFEN
  47. LEVOFLOXACIN. [Concomitant]
     Active Substance: LEVOFLOXACIN

REACTIONS (5)
  - Nephrogenic anaemia [Unknown]
  - Hyperparathyroidism secondary [Unknown]
  - End stage renal disease [Unknown]
  - Chronic kidney disease [Unknown]
  - Renal failure [Not Recovered/Not Resolved]

NARRATIVE: CASE EVENT DATE: 200807
